FAERS Safety Report 9355301 (Version 2)
Quarter: 2013Q3

REPORT INFORMATION
  Report Type: Spontaneous
  Country: AU (occurrence: AU)
  Receive Date: 20130619
  Receipt Date: 20130716
  Transmission Date: 20140515
  Serious: Yes (Death)
  Sender: FDA-Public Use
  Company Number: AU-GENZYME-CERZ-1003057

PATIENT
  Sex: Female
  Weight: 77.3 kg

DRUGS (5)
  1. CEREZYME [Suspect]
     Indication: GAUCHER^S DISEASE
     Dosage: 24.7 U/KG, Q2W
     Route: 042
     Dates: start: 20040520, end: 20130103
  2. FOSAMAX [Concomitant]
     Indication: OSTEOPOROSIS
     Dosage: UNK
     Route: 065
  3. KARVEA [Concomitant]
     Indication: BLOOD PRESSURE
     Dosage: 75 MG, UNK
     Route: 065
  4. JANUMET [Concomitant]
     Indication: DIABETES MELLITUS
     Dosage: 50/1000MG, BID
     Route: 065
  5. PANADOL [Concomitant]
     Indication: PRODUCT USED FOR UNKNOWN INDICATION
     Dosage: UNK
     Route: 065

REACTIONS (1)
  - Myocardial infarction [Fatal]
